FAERS Safety Report 8514320-2 (Version None)
Quarter: 2012Q3

REPORT INFORMATION
  Report Type: 
  Country: None (occurrence: None)
  Receive Date: 20120717
  Receipt Date: 20120706
  Transmission Date: 20120928
  Serious: Yes (Death)
  Sender: FDA-Public Use
  Company Number: US-JNJFOC-20120703791

PATIENT
  Sex: Female
  Weight: 53.07 kg

DRUGS (4)
  1. STELARA [Suspect]
     Dosage: 2ND INJECTION
     Route: 058
     Dates: start: 20120305, end: 20120305
  2. REMICADE [Concomitant]
     Route: 050
     Dates: start: 20101007
  3. STELARA [Suspect]
     Indication: PYODERMA GANGRENOSUM
     Dosage: 1ST INJECTION
     Route: 058
     Dates: start: 20111103, end: 20111103
  4. HUMIRA [Suspect]
     Indication: PYODERMA GANGRENOSUM
     Dosage: 17 INJECTIONS
     Route: 058
     Dates: start: 20110301, end: 20111001

REACTIONS (2)
  - COLON CANCER METASTATIC [None]
  - OFF LABEL USE [None]
